FAERS Safety Report 4349347-8 (Version None)
Quarter: 2004Q2

REPORT INFORMATION
  Report Type: 
  Country: None (occurrence: None)
  Receive Date: 20040426
  Receipt Date: 20040406
  Transmission Date: 20050107
  Serious: Yes (Hospitalization)
  Sender: FDA-Public Use
  Company Number: ZANA001163

PATIENT
  Age: 14 Year
  Sex: Male

DRUGS (5)
  1. TIZANIDINE HCL [Suspect]
     Indication: DRUG USE FOR UNKNOWN INDICATION
     Dosage: ORAL
     Route: 048
     Dates: start: 20040311, end: 20040311
  2. ROHYPNOL (FLUNITRAZEPAM) [Suspect]
     Indication: DRUG USE FOR UNKNOWN INDICATION
     Dosage: 4 TABLETS ORAL
     Route: 048
     Dates: start: 20040311, end: 20040311
  3. DEPAS (ETIZOLAM) [Concomitant]
  4. ALPRAZOLAM [Concomitant]
  5. NITRAZEPAM [Concomitant]

REACTIONS (3)
  - DRUG SCREEN POSITIVE [None]
  - MEDICATION ERROR [None]
  - SOMNOLENCE [None]
